FAERS Safety Report 14849293 (Version 2)
Quarter: 2018Q2

REPORT INFORMATION
  Report Type: Spontaneous
  Country: FR (occurrence: FR)
  Receive Date: 20180504
  Receipt Date: 20180613
  Transmission Date: 20180711
  Serious: Yes (Life-Threatening, Other)
  Sender: FDA-Public Use
  Company Number: FR-GLAXOSMITHKLINE-FR2018076723

PATIENT
  Age: 53 Year
  Sex: Female

DRUGS (13)
  1. CEFIXIME. [Suspect]
     Active Substance: CEFIXIME
     Indication: ALLERGY TEST
     Dosage: 176 MG, IN TOTAL
     Route: 048
     Dates: start: 20180328, end: 20180328
  2. AMOXICILLIN SODIUM [Suspect]
     Active Substance: AMOXICILLIN SODIUM
     Indication: ALLERGY TEST
     Dosage: UNK
     Route: 023
  3. TAZOBACTAM [Suspect]
     Active Substance: TAZOBACTAM
     Indication: ALLERGY TEST
     Dosage: UNK
     Route: 023
  4. SERESTA [Concomitant]
     Active Substance: OXAZEPAM
     Indication: PRODUCT USED FOR UNKNOWN INDICATION
     Dosage: UNK
     Route: 065
  5. CEFAZOLINE [Suspect]
     Active Substance: CEFAZOLIN SODIUM
     Indication: ALLERGY TEST
     Dosage: UNK
     Route: 023
  6. FLUOXETINE CHLORHYDRATE [Concomitant]
     Indication: PRODUCT USED FOR UNKNOWN INDICATION
     Dosage: UNK
     Route: 065
  7. CEFUROXIME. [Suspect]
     Active Substance: CEFUROXIME
     Indication: ALLERGY TEST
     Dosage: UNK
     Route: 023
  8. CEFTRIAXONE SODIUM. [Suspect]
     Active Substance: CEFTRIAXONE SODIUM
     Indication: ALLERGY TEST
     Dosage: UNK
     Route: 023
  9. PENICILLINE G (BENZYLPENICILLIN SODIUM) [Suspect]
     Active Substance: PENICILLIN G SODIUM
     Indication: ALLERGY TEST
     Dosage: UNK
     Route: 023
  10. PIPERACILLIN SODIUM [Suspect]
     Active Substance: PIPERACILLIN SODIUM
     Indication: ALLERGY TEST
     Dosage: UNK
     Route: 023
  11. CLOXACILLINE [Suspect]
     Active Substance: CLOXACILLIN
     Indication: ALLERGY TEST
     Dosage: UNK
     Route: 023
  12. CEFOTAXIME SODIUM [Suspect]
     Active Substance: CEFOTAXIME SODIUM
     Indication: ALLERGY TEST
     Dosage: UNK
     Route: 023
  13. MONOCRIXO [Concomitant]
     Active Substance: TRAMADOL HYDROCHLORIDE
     Indication: PRODUCT USED FOR UNKNOWN INDICATION
     Dosage: UNK
     Route: 065

REACTIONS (1)
  - Angioedema [Recovered/Resolved]

NARRATIVE: CASE EVENT DATE: 20180328
